FAERS Safety Report 12158367 (Version 1)
Quarter: 2016Q1

REPORT INFORMATION
  Report Type: Spontaneous
  Country: US (occurrence: US)
  Receive Date: 20160308
  Receipt Date: 20160308
  Transmission Date: 20160526
  Serious: Yes (Other)
  Sender: FDA-Public Use
  Company Number: US-JNJFOC-20150403871

PATIENT
  Age: 85 Year
  Sex: Male
  Weight: 65 kg

DRUGS (20)
  1. NAMENDA [Concomitant]
     Active Substance: MEMANTINE HYDROCHLORIDE
  2. PROCRIT [Concomitant]
     Active Substance: ERYTHROPOIETIN
  3. FLUOCINONIDE. [Concomitant]
     Active Substance: FLUOCINONIDE
  4. ASPIRIN. [Concomitant]
     Active Substance: ASPIRIN
  5. ROPINIROLE. [Concomitant]
     Active Substance: ROPINIROLE
  6. CENTRUM (MINERALS NOS, VITAMINS NOS) [Concomitant]
  7. CALCIUM CARBONATE AND VITAMIN D [Concomitant]
  8. IMBRUVICA [Suspect]
     Active Substance: IBRUTINIB
     Indication: WALDENSTROM^S MACROGLOBULINAEMIA
     Route: 048
  9. BEANO [Concomitant]
     Active Substance: ASPERGILLUS NIGER .ALPHA.-GALACTOSIDASE
  10. FINASTERIDE. [Concomitant]
     Active Substance: FINASTERIDE
  11. IMODIUM [Concomitant]
     Active Substance: LOPERAMIDE HYDROCHLORIDE
  12. VITAMIN D [Concomitant]
     Active Substance: CHOLECALCIFEROL
  13. ALENDRONATE [Concomitant]
     Active Substance: ALENDRONATE SODIUM
  14. BACLOFEN. [Concomitant]
     Active Substance: BACLOFEN
  15. DONEPEZIL. [Concomitant]
     Active Substance: DONEPEZIL
  16. COQ10 [Concomitant]
     Active Substance: UBIDECARENONE
  17. GABAPENTIN. [Concomitant]
     Active Substance: GABAPENTIN
  18. IPRATROPIUM [Concomitant]
     Active Substance: IPRATROPIUM
  19. POLY IRON [Concomitant]
     Active Substance: DIETARY SUPPLEMENT
  20. LATANOPROST. [Concomitant]
     Active Substance: LATANOPROST

REACTIONS (1)
  - Eye haemorrhage [Unknown]

NARRATIVE: CASE EVENT DATE: 20140709
